FAERS Safety Report 25907745 (Version 1)
Quarter: 2025Q4

REPORT INFORMATION
  Report Type: Spontaneous
  Country: TN (occurrence: TN)
  Receive Date: 20251010
  Receipt Date: 20251010
  Transmission Date: 20260117
  Serious: Yes (Hospitalization, Other)
  Sender: FRESENIUS KABI
  Company Number: TN-FreseniusKabi-FK202513810

PATIENT
  Age: 54 Year
  Sex: Female

DRUGS (6)
  1. PROPOFOL [Suspect]
     Active Substance: PROPOFOL
     Indication: Induction of anaesthesia
     Dosage: ANESTHESIA WAS MAINTAINED USING: PROPOFOL (6 MG/KG/H)?FORM OF ADMIN: INFUSION
  2. PROPOFOL [Suspect]
     Active Substance: PROPOFOL
     Indication: Maintenance of anaesthesia
  3. REMIFENTANIL [Concomitant]
     Active Substance: REMIFENTANIL
     Indication: Induction of anaesthesia
     Dosage: (1 ?G/KG OVER 2 MIN)?ANESTHESIA WAS MAINTAINED USING: REMIFENTANIL (0.1?0.5 ?G/KG/MIN)
  4. REMIFENTANIL [Concomitant]
     Active Substance: REMIFENTANIL
     Indication: Maintenance of anaesthesia
  5. CISATRACURIUM [Concomitant]
     Active Substance: CISATRACURIUM
     Indication: Induction of anaesthesia
     Dosage: ANESTHESIA WAS MAINTAINED USING: CISATRACURIUM (0.12 MG/KG/H)
  6. CISATRACURIUM [Concomitant]
     Active Substance: CISATRACURIUM
     Indication: Maintenance of anaesthesia

REACTIONS (1)
  - Diabetes insipidus [Recovering/Resolving]
